FAERS Safety Report 7912039-X (Version None)
Quarter: 2011Q4

REPORT INFORMATION
  Report Type: 
  Country: None (occurrence: None)
  Receive Date: 20111114
  Receipt Date: 20111110
  Transmission Date: 20120403
  Serious: Yes (Death, Life-Threatening, Hospitalization)
  Sender: FDA-Public Use
  Company Number: DE-AMGEN-STX335964

PATIENT
  Age: 60 Year
  Sex: Female

DRUGS (2)
  1. CISPLATIN [Concomitant]
     Dosage: 75 MG/M2, UNK
     Route: 042
     Dates: start: 20081029, end: 20081120
  2. PANITUMUMAB [Suspect]
     Indication: SQUAMOUS CELL CARCINOMA
     Dosage: 315 MG, UNK
     Route: 042
     Dates: start: 20081029, end: 20081224

REACTIONS (3)
  - INFECTION [None]
  - SEPSIS [None]
  - METASTASES TO LUNG [None]
